FAERS Safety Report 4528280-2 (Version None)
Quarter: 2004Q4

REPORT INFORMATION
  Report Type: 
  Country: None (occurrence: None)
  Receive Date: 20041202
  Receipt Date: 20040927
  Transmission Date: 20050328
  Serious: Yes (Other)
  Sender: FDA-Public Use
  Company Number: 200420632BWH

PATIENT
  Age: 47 Year
  Sex: Male

DRUGS (4)
  1. LEVITRA [Suspect]
     Indication: ERECTILE DYSFUNCTION
     Dosage: 5 MG, PRN, ORAL
     Route: 048
     Dates: start: 20040917, end: 20040924
  2. PROTONIX [Concomitant]
  3. LISINOPRIL [Concomitant]
  4. VIAGRA [Concomitant]

REACTIONS (8)
  - BLOOD PRESSURE DECREASED [None]
  - DISORIENTATION [None]
  - DIZZINESS [None]
  - FALL [None]
  - HYPERHIDROSIS [None]
  - MUSCLE CRAMP [None]
  - PALLOR [None]
  - SYNCOPE [None]
